FAERS Safety Report 17565588 (Version 3)
Quarter: 2024Q1

REPORT INFORMATION
  Report Type: Spontaneous
  Country: US (occurrence: US)
  Receive Date: 20200320
  Receipt Date: 20240116
  Transmission Date: 20240410
  Serious: No
  Sender: FDA-Public Use
  Company Number: US-PFIZER INC-2020120857

PATIENT
  Age: 57 Year
  Sex: Female

DRUGS (1)
  1. METHOTREXATE SODIUM [Suspect]
     Active Substance: METHOTREXATE SODIUM
     Indication: Synovitis
     Dosage: UNK
     Dates: start: 201512

REACTIONS (3)
  - Off label use [Unknown]
  - Alopecia [Unknown]
  - Feeling hot [Unknown]

NARRATIVE: CASE EVENT DATE: 20151201
